FAERS Safety Report 24893152 (Version 1)
Quarter: 2025Q1

REPORT INFORMATION
  Report Type: Spontaneous
  Country: FR (occurrence: FR)
  Receive Date: 20250128
  Receipt Date: 20250128
  Transmission Date: 20250408
  Serious: Yes (Other)
  Sender: NORDIC PHARMA
  Company Number: None

PATIENT
  Age: 74 Year
  Sex: Female
  Weight: 105 kg

DRUGS (20)
  1. METHOTREXATE [Suspect]
     Active Substance: METHOTREXATE
     Indication: Polymyalgia rheumatica
     Route: 065
     Dates: start: 20241101, end: 20241104
  2. CALCIUM\CHOLECALCIFEROL [Concomitant]
     Active Substance: CALCIUM\CHOLECALCIFEROL
  3. ASPIRIN [Concomitant]
     Active Substance: ASPIRIN
  4. ACETAMINOPHEN [Concomitant]
     Active Substance: ACETAMINOPHEN
  5. TOUJEO [Concomitant]
     Active Substance: INSULIN GLARGINE
     Indication: Type 2 diabetes mellitus
  6. ESIDREX [Concomitant]
     Active Substance: HYDROCHLOROTHIAZIDE
  7. POTASSIUM CHLORIDE [Concomitant]
     Active Substance: POTASSIUM CHLORIDE
  8. NOVORAPID [Concomitant]
     Active Substance: INSULIN ASPART
     Indication: Type 2 diabetes mellitus
  9. DESLORATADINE [Concomitant]
     Active Substance: DESLORATADINE
  10. PANTOPRAZOLE [Concomitant]
     Active Substance: PANTOPRAZOLE
  11. FUROSEMIDE [Concomitant]
     Active Substance: FUROSEMIDE
  12. PREDNISONE [Concomitant]
     Active Substance: PREDNISONE
  13. ALLOPURINOL [Concomitant]
     Active Substance: ALLOPURINOL
  14. ACTONEL [Concomitant]
     Active Substance: RISEDRONATE SODIUM
  15. TELMISARTAN [Concomitant]
     Active Substance: TELMISARTAN
  16. DAFALGAN CODEINE [Concomitant]
     Active Substance: ACETAMINOPHEN\CODEINE PHOSPHATE
  17. ATORVASTATIN [Concomitant]
     Active Substance: ATORVASTATIN
  18. VICTOZA [Concomitant]
     Active Substance: LIRAGLUTIDE
     Indication: Type 2 diabetes mellitus
  19. JARDIANCE [Concomitant]
     Active Substance: EMPAGLIFLOZIN
  20. AMIODARONE [Concomitant]
     Active Substance: AMIODARONE

REACTIONS (4)
  - Accidental overdose [Recovered/Resolved]
  - Inappropriate schedule of product administration [Recovered/Resolved]
  - Diarrhoea [Recovered/Resolved]
  - Product use in unapproved indication [Unknown]

NARRATIVE: CASE EVENT DATE: 20241102
